FAERS Safety Report 5750264-7 (Version None)
Quarter: 2008Q2

REPORT INFORMATION
  Report Type: 
  Country: None (occurrence: None)
  Receive Date: 20080522
  Receipt Date: 20080522
  Transmission Date: 20081010
  Serious: Yes (Other)
  Sender: FDA-Public Use
  Company Number: None

PATIENT
  Age: 49 Year
  Sex: Male
  Weight: 80.7403 kg

DRUGS (1)
  1. CLOZAPINE [Suspect]
     Indication: SCHIZOPHRENIA
     Dosage: PO 100MG ONE QAM   IV QHS
     Route: 048
     Dates: start: 20031001

REACTIONS (3)
  - BURNING SENSATION [None]
  - DELUSION [None]
  - PAIN [None]
